FAERS Safety Report 18207243 (Version 1)
Quarter: 2020Q3

REPORT INFORMATION
  Report Type: Spontaneous
  Country: JP (occurrence: JP)
  Receive Date: 20200828
  Receipt Date: 20200828
  Transmission Date: 20201103
  Serious: Yes (Hospitalization)
  Sender: FDA-Public Use
  Company Number: JP-ELI_LILLY_AND_COMPANY-JP202008009012

PATIENT
  Sex: Male

DRUGS (2)
  1. ALIMTA [Suspect]
     Active Substance: PEMETREXED DISODIUM
     Indication: LUNG NEOPLASM MALIGNANT
     Dosage: UNK
     Route: 041
     Dates: start: 202003
  2. CARBOPLATIN. [Concomitant]
     Active Substance: CARBOPLATIN
     Indication: LUNG NEOPLASM MALIGNANT
     Dosage: UNK
     Route: 041
     Dates: start: 202003

REACTIONS (8)
  - Hiccups [Unknown]
  - Decreased appetite [Unknown]
  - Diarrhoea [Unknown]
  - Pyrexia [Unknown]
  - C-reactive protein increased [Unknown]
  - Infection [Unknown]
  - Asthenia [Unknown]
  - Tumour marker increased [Unknown]

NARRATIVE: CASE EVENT DATE: 2020
